FAERS Safety Report 17756496 (Version 1)
Quarter: 2020Q2

REPORT INFORMATION
  Report Type: Spontaneous
  Country: US (occurrence: US)
  Receive Date: 20200507
  Receipt Date: 20200507
  Transmission Date: 20200714
  Serious: Yes (Hospitalization)
  Sender: FDA-Public Use
  Company Number: US-PFIZER INC-2020180000

PATIENT
  Age: 74 Year
  Sex: Female
  Weight: 77.55 kg

DRUGS (5)
  1. SILDENAFIL CITRATE. [Suspect]
     Active Substance: SILDENAFIL CITRATE
     Indication: PULMONARY ARTERIAL HYPERTENSION
     Dosage: UNK
  2. TYVASO [Suspect]
     Active Substance: TREPROSTINIL
     Indication: PULMONARY ARTERIAL HYPERTENSION
     Dosage: UNK(INHALATION)
     Route: 055
     Dates: start: 20200316
  3. TYVASO [Suspect]
     Active Substance: TREPROSTINIL
     Dosage: UNK(UNK (INCREASED DOSE),INHALATION)
     Route: 055
  4. TYVASO [Suspect]
     Active Substance: TREPROSTINIL
     Dosage: UNK, 4X/DAY(18-54 ?G (3-9 BREATHS), QID, VIA IH ROUTE)
     Route: 055
  5. TYVASO [Suspect]
     Active Substance: TREPROSTINIL
     Dosage: UNK, 4X/DAY(60-120?G (10-20 BREATHS), FOUR TIMES A DAY VIA INHALATION ROUTE)
     Route: 055

REACTIONS (5)
  - Dyspnoea [Unknown]
  - Fluid overload [Unknown]
  - Pruritus [Unknown]
  - Oedema peripheral [Unknown]
  - Cardiac failure [Unknown]

NARRATIVE: CASE EVENT DATE: 202004
